FAERS Safety Report 16055685 (Version 13)
Quarter: 2021Q4

REPORT INFORMATION
  Report Type: Spontaneous
  Country: US (occurrence: US)
  Receive Date: 20190311
  Receipt Date: 20211011
  Transmission Date: 20220303
  Serious: No
  Sender: FDA-Public Use
  Company Number: US-BIOGEN-2019BI00705396

PATIENT
  Sex: Female

DRUGS (2)
  1. TYSABRI [Suspect]
     Active Substance: NATALIZUMAB
     Indication: Multiple sclerosis
     Route: 042
     Dates: start: 20130715
  2. TYSABRI [Suspect]
     Active Substance: NATALIZUMAB
     Dosage: TYSABRI INFUSIONS EVERY 6 TO 8 WEEKS
     Route: 065

REACTIONS (13)
  - Prescribed underdose [Not Recovered/Not Resolved]
  - Infusion site irritation [Not Recovered/Not Resolved]
  - Malaise [Not Recovered/Not Resolved]
  - Emotional distress [Not Recovered/Not Resolved]
  - Multiple sclerosis [Not Recovered/Not Resolved]
  - Vein disorder [Not Recovered/Not Resolved]
  - Poor venous access [Unknown]
  - Impaired healing [Unknown]
  - Atypical pneumonia [Unknown]
  - Vascular pain [Unknown]
  - Coronavirus infection [Recovered/Resolved]
  - Anxiety [Not Recovered/Not Resolved]
  - Influenza [Unknown]
